FAERS Safety Report 6976992-3 (Version None)
Quarter: 2010Q3

REPORT INFORMATION
  Report Type: 
  Country: None (occurrence: None)
  Receive Date: 20100910
  Receipt Date: 20100901
  Transmission Date: 20110219
  Serious: Yes (Other)
  Sender: FDA-Public Use
  Company Number: US-ROCHE-725725

PATIENT
  Sex: Female

DRUGS (4)
  1. HERCEPTIN [Suspect]
     Dosage: STARTED ABOUT 4 YEARS AGO.
     Route: 042
  2. TAXOTERE [Suspect]
     Route: 065
  3. ABRAXANE [Suspect]
     Route: 065
  4. NAVELBINE [Suspect]
     Route: 065

REACTIONS (1)
  - BREAST CANCER METASTATIC [None]
